FAERS Safety Report 4393358-3 (Version None)
Quarter: 2004Q3

REPORT INFORMATION
  Report Type: 
  Country: None (occurrence: None)
  Receive Date: 20040709
  Receipt Date: 20040701
  Transmission Date: 20050211
  Serious: Yes (Other)
  Sender: FDA-Public Use
  Company Number: PHNU2004DE02350

PATIENT
  Sex: Female

DRUGS (3)
  1. ZOMETA [Suspect]
     Dosage: 4 MG, QMO
     Dates: start: 20011001
  2. AREDIA [Suspect]
     Dosage: 90 MG, QMO
     Route: 042
     Dates: start: 20000301, end: 20010901
  3. IBUPROFEN UNKNOWN MANUFACTURER (NCH) [Suspect]
     Route: 065

REACTIONS (3)
  - NEPHRITIS INTERSTITIAL [None]
  - OSTEONECROSIS [None]
  - RENAL FAILURE ACUTE [None]
